FAERS Safety Report 16914850 (Version 1)
Quarter: 2019Q4

REPORT INFORMATION
  Report Type: Report from Study
  Country: US (occurrence: US)
  Receive Date: 20191014
  Receipt Date: 20191014
  Transmission Date: 20200122
  Serious: Yes (Other)
  Sender: FDA-Public Use
  Company Number: US-SA-2017SA107781

PATIENT
  Age: 33 Year
  Sex: Female

DRUGS (2)
  1. ALEMTUZUMAB [Suspect]
     Active Substance: ALEMTUZUMAB
     Indication: MULTIPLE SCLEROSIS
     Dosage: 12 MG, QD
     Route: 041
     Dates: start: 20170607, end: 20170609
  2. ALEMTUZUMAB [Suspect]
     Active Substance: ALEMTUZUMAB
     Dosage: 12 MG, QD
     Route: 041
     Dates: start: 20160201, end: 20160205

REACTIONS (29)
  - Cognitive disorder [Not Recovered/Not Resolved]
  - Rhinorrhoea [Not Recovered/Not Resolved]
  - Autoimmune disorder [Unknown]
  - Secondary progressive multiple sclerosis [Unknown]
  - Low density lipoprotein increased [Not Recovered/Not Resolved]
  - Thirst [Not Recovered/Not Resolved]
  - Rash [Not Recovered/Not Resolved]
  - Balance disorder [Not Recovered/Not Resolved]
  - Hypersomnia [Unknown]
  - Vitamin D decreased [Unknown]
  - Rash [Not Recovered/Not Resolved]
  - Fatigue [Unknown]
  - Depression [Unknown]
  - Unevaluable event [Unknown]
  - Central nervous system lesion [Not Recovered/Not Resolved]
  - Hypoaesthesia [Not Recovered/Not Resolved]
  - Urticaria [Recovered/Resolved]
  - Musculoskeletal disorder [Not Recovered/Not Resolved]
  - Fall [Recovered/Resolved]
  - Photosensitivity reaction [Not Recovered/Not Resolved]
  - Memory impairment [Unknown]
  - Multiple sclerosis relapse [Not Recovered/Not Resolved]
  - Erythema [Not Recovered/Not Resolved]
  - Yawning [Not Recovered/Not Resolved]
  - Feeling abnormal [Unknown]
  - Feeling abnormal [Not Recovered/Not Resolved]
  - Fatigue [Not Recovered/Not Resolved]
  - Urticaria [Not Recovered/Not Resolved]
  - Immunodeficiency [Unknown]

NARRATIVE: CASE EVENT DATE: 2017
